FAERS Safety Report 20096797 (Version 1)
Quarter: 2021Q4

REPORT INFORMATION
  Report Type: Spontaneous
  Country: US (occurrence: None)
  Receive Date: 20211122
  Receipt Date: 20211122
  Transmission Date: 20220304
  Serious: Yes (Hospitalization)
  Sender: FDA-Public Use
  Company Number: None

PATIENT
  Age: 72 Year
  Sex: Male
  Weight: 92 kg

DRUGS (2)
  1. CHLORTHALIDONE [Suspect]
     Active Substance: CHLORTHALIDONE
     Indication: Hypertension
     Dosage: OTHER FREQUENCY : AM;?
     Route: 048
     Dates: start: 20171219, end: 20210901
  2. CHLORTHALIDONE [Suspect]
     Active Substance: CHLORTHALIDONE
     Indication: Oedema

REACTIONS (3)
  - Mental status changes [None]
  - Hyponatraemia [None]
  - Confusional state [None]

NARRATIVE: CASE EVENT DATE: 20210901
